FAERS Safety Report 18489614 (Version 2)
Quarter: 2020Q4

REPORT INFORMATION
  Report Type: Spontaneous
  Country: GR (occurrence: GR)
  Receive Date: 20201111
  Receipt Date: 20201207
  Transmission Date: 20210114
  Serious: Yes (Disabling)
  Sender: FDA-Public Use
  Company Number: GR-ROCHE-2710819

PATIENT
  Age: 65 Year
  Sex: Female

DRUGS (2)
  1. XOLAIR [Suspect]
     Active Substance: OMALIZUMAB
     Indication: URTICARIA
     Dosage: FOR APPROXIMATELY 2 MONTHS
     Route: 065
  2. XOZAL [Concomitant]
     Active Substance: LEVOCETIRIZINE
     Indication: PRODUCT USED FOR UNKNOWN INDICATION
     Dosage: UNK
     Route: 065

REACTIONS (4)
  - Arthralgia [Recovering/Resolving]
  - Erythema [Recovered/Resolved]
  - Gait disturbance [Unknown]
  - Joint swelling [Recovered/Resolved]
